FAERS Safety Report 11108047 (Version 1)
Quarter: 2015Q2

REPORT INFORMATION
  Report Type: Spontaneous
  Country: US (occurrence: US)
  Receive Date: 20150512
  Receipt Date: 20150512
  Transmission Date: 20150821
  Serious: No
  Sender: FDA-Public Use
  Company Number: US-GLAXOSMITHKLINE-US2015GSK061012

PATIENT
  Age: 50 Year
  Sex: Male

DRUGS (1)
  1. VOTRIENT [Suspect]
     Active Substance: PAZOPANIB HYDROCHLORIDE
     Indication: MALIGNANT URINARY TRACT NEOPLASM
     Dosage: 800 MG, QD
     Route: 048
     Dates: start: 20140923, end: 20150328

REACTIONS (10)
  - Headache [Unknown]
  - Hair colour changes [Unknown]
  - Dental caries [Unknown]
  - Nausea [Unknown]
  - Skin discolouration [Unknown]
  - Eyelash discolouration [Unknown]
  - Pain in extremity [Unknown]
  - Paraesthesia [Unknown]
  - Asthenia [Unknown]
  - Tooth fracture [Unknown]
